FAERS Safety Report 9658907 (Version 1)
Quarter: 2013Q4

REPORT INFORMATION
  Report Type: Spontaneous
  Country: US (occurrence: US)
  Receive Date: 20131030
  Receipt Date: 20131030
  Transmission Date: 20140711
  Serious: No
  Sender: FDA-Public Use
  Company Number: US-009507513-1310USA012179

PATIENT
  Age: 70 Year
  Sex: Male

DRUGS (1)
  1. DULERA [Suspect]
     Indication: LUNG DISORDER
     Dosage: 2 PUFFS TWICE A DAY
     Route: 055
     Dates: start: 201308

REACTIONS (5)
  - Dyspnoea [Recovering/Resolving]
  - Drug dose omission [Unknown]
  - Drug dose omission [Unknown]
  - Drug prescribing error [Unknown]
  - Product quality issue [Unknown]
